FAERS Safety Report 5443312-5 (Version None)
Quarter: 2007Q3

REPORT INFORMATION
  Report Type: 
  Country: None (occurrence: None)
  Receive Date: 20070831
  Receipt Date: 20070831
  Transmission Date: 20080115
  Serious: Yes (Hospitalization, Disabling, Other)
  Sender: FDA-Public Use
  Company Number: None

PATIENT
  Age: 47 Year
  Sex: Female
  Weight: 68.0396 kg

DRUGS (7)
  1. SERTRALINE HCL [Suspect]
     Indication: DEPRESSION
     Dosage: 100 MG QD PO
     Route: 048
     Dates: start: 20070726, end: 20070828
  2. GABAPENTIN [Concomitant]
  3. INDERAL LA [Concomitant]
  4. PRIMIDONE [Concomitant]
  5. XANAX [Concomitant]
  6. HYDOXINE HCL [Concomitant]
  7. ZYRTEC [Concomitant]

REACTIONS (4)
  - ALOPECIA [None]
  - CHEST PAIN [None]
  - PHARMACEUTICAL PRODUCT COMPLAINT [None]
  - URTICARIA [None]
